FAERS Safety Report 24359779 (Version 4)
Quarter: 2024Q4

REPORT INFORMATION
  Report Type: Report from Study
  Country: US (occurrence: US)
  Receive Date: 20240924
  Receipt Date: 20241108
  Transmission Date: 20250114
  Serious: Yes (Hospitalization, Other)
  Sender: ABBVIE
  Company Number: US-ABBVIE-5931654

PATIENT
  Age: 77 Year
  Sex: Female
  Weight: 63.049 kg

DRUGS (2)
  1. QULIPTA [Suspect]
     Active Substance: ATOGEPANT
     Indication: Migraine
     Dosage: FORM STRENGTH: 60 MILLIGRAM
     Route: 048
     Dates: start: 20230223
  2. DILTIAZEM [Concomitant]
     Active Substance: DILTIAZEM
     Indication: Cardiac disorder

REACTIONS (3)
  - Aortic dissection [Recovered/Resolved]
  - Abdominal pain [Recovered/Resolved]
  - Fatigue [Unknown]

NARRATIVE: CASE EVENT DATE: 20240901
